FAERS Safety Report 26074719 (Version 1)
Quarter: 2025Q4

REPORT INFORMATION
  Report Type: Report from Study
  Country: EU (occurrence: EU)
  Receive Date: 20251121
  Receipt Date: 20251121
  Transmission Date: 20260118
  Serious: Yes (Other)
  Sender: DECIPHERA PHARMACEUTICALS
  Company Number: EU-DECIPHERA PHARMACEUTICALS LLC-2022NL000815

PATIENT

DRUGS (5)
  1. RIPRETINIB [Suspect]
     Active Substance: RIPRETINIB
     Indication: Gastrointestinal stromal tumour
     Dosage: 150 MILLIGRAM, QD
     Dates: start: 20210927
  2. RIPRETINIB [Suspect]
     Active Substance: RIPRETINIB
     Dosage: 100 MILLIGRAM, QD
     Dates: start: 20211015
  3. RIPRETINIB [Suspect]
     Active Substance: RIPRETINIB
     Dosage: UNK
  4. RIPRETINIB [Suspect]
     Active Substance: RIPRETINIB
     Dosage: UNK
  5. RIPRETINIB [Suspect]
     Active Substance: RIPRETINIB
     Dosage: 50 MILLIGRAM, QD
     Dates: start: 202204, end: 202307

REACTIONS (2)
  - Toxic skin eruption [Unknown]
  - Palmar-plantar erythrodysaesthesia syndrome [Unknown]
